FAERS Safety Report 15989731 (Version 4)
Quarter: 2019Q3

REPORT INFORMATION
  Report Type: Report from Study
  Country: GB (occurrence: GB)
  Receive Date: 20190221
  Receipt Date: 20190731
  Transmission Date: 20191004
  Serious: Yes (Hospitalization)
  Sender: FDA-Public Use
  Company Number: PHHY2019GB038186

PATIENT
  Age: 51 Year
  Sex: Male

DRUGS (9)
  1. MIRTAZAPINE. [Concomitant]
     Active Substance: MIRTAZAPINE
     Indication: DEPRESSION
     Dosage: 45 MG, QD
     Route: 048
     Dates: start: 20151023
  2. RAMIPRIL. [Concomitant]
     Active Substance: RAMIPRIL
     Indication: HYPERTENSION
     Dosage: 5 MG, QD
     Route: 048
     Dates: start: 20170628
  3. COSENTYX [Suspect]
     Active Substance: SECUKINUMAB
     Indication: PSORIATIC ARTHROPATHY
     Dosage: 150 MG, FORTNIGHTLY
     Route: 065
     Dates: start: 20180102
  4. QUININE SULFATE. [Concomitant]
     Active Substance: QUININE SULFATE
     Indication: MUSCLE SPASMS
     Dosage: 300 MG, QD
     Route: 048
     Dates: start: 20170411
  5. PROCHLORPERAZINE. [Concomitant]
     Active Substance: PROCHLORPERAZINE
     Indication: PSORIATIC ARTHROPATHY
     Dosage: 3 MG, BID
     Route: 048
     Dates: start: 20160520
  6. COSENTYX [Suspect]
     Active Substance: SECUKINUMAB
     Dosage: 150 MG, FORTNIGHTLY
     Route: 065
     Dates: start: 20180130
  7. COSENTYX [Suspect]
     Active Substance: SECUKINUMAB
     Dosage: 150 MG, FORTNIGHTLY
     Route: 065
     Dates: start: 20181017
  8. CYCLIZINE [Concomitant]
     Active Substance: CYCLIZINE
     Indication: PSORIATIC ARTHROPATHY
     Dosage: 50 MG, TID
     Route: 048
     Dates: start: 20150319
  9. ZOLPIDEM [Concomitant]
     Active Substance: ZOLPIDEM TARTRATE
     Indication: INSOMNIA
     Dosage: 10 MG, BID
     Route: 048
     Dates: start: 20180101

REACTIONS (13)
  - Lower respiratory tract infection [Recovered/Resolved]
  - Pallor [Unknown]
  - Abdominal hernia [Not Recovered/Not Resolved]
  - Umbilical hernia [Not Recovered/Not Resolved]
  - Cough [Unknown]
  - Pyrexia [Unknown]
  - Delirium [Recovered/Resolved]
  - Cold sweat [Unknown]
  - Abdominal pain [Not Recovered/Not Resolved]
  - Product prescribing error [Unknown]
  - Hallucination [Recovered/Resolved]
  - Circulatory collapse [Recovered/Resolved]
  - Malaise [Unknown]

NARRATIVE: CASE EVENT DATE: 20180823
